FAERS Safety Report 20946773 (Version 1)
Quarter: 2022Q2

REPORT INFORMATION
  Report Type: Report from Study
  Country: MX (occurrence: None)
  Receive Date: 20220610
  Receipt Date: 20220610
  Transmission Date: 20220721
  Serious: Yes (Death, Other)
  Sender: FDA-Public Use
  Company Number: 2022A214467

PATIENT
  Age: 73 Year
  Sex: Female

DRUGS (1)
  1. XIGDUO XR [Suspect]
     Active Substance: DAPAGLIFLOZIN PROPANEDIOL\METFORMIN HYDROCHLORIDE
     Indication: Diabetes mellitus
     Dosage: 5/1000 MG, UNKNOWN FREQUENCY UNKNOWN
     Route: 048

REACTIONS (4)
  - Death [Fatal]
  - Renal failure [Unknown]
  - Weight increased [Unknown]
  - Weight fluctuation [Unknown]
